FAERS Safety Report 6964021-7 (Version None)
Quarter: 2010Q3

REPORT INFORMATION
  Report Type: 
  Country: None (occurrence: None)
  Receive Date: 20100902
  Receipt Date: 20100902
  Transmission Date: 20110219
  Serious: Yes (Hospitalization)
  Sender: FDA-Public Use
  Company Number: None

PATIENT
  Age: 59 Year
  Sex: Female
  Weight: 59 kg

DRUGS (1)
  1. MORPHINE [Suspect]
     Indication: PROCEDURAL PAIN
     Dosage: 13 MG OVER 30 MINUTES IV BOLUS
     Route: 040

REACTIONS (3)
  - INCORRECT DOSE ADMINISTERED [None]
  - LETHARGY [None]
  - RESPIRATORY RATE DECREASED [None]
